FAERS Safety Report 8200322-2 (Version None)
Quarter: 2012Q1

REPORT INFORMATION
  Report Type: 
  Country: None (occurrence: None)
  Receive Date: 20120312
  Receipt Date: 20120307
  Transmission Date: 20120608
  Serious: Yes (Other)
  Sender: FDA-Public Use
  Company Number: US-PFIZER INC-2012028640

PATIENT
  Sex: Male
  Weight: 126 kg

DRUGS (6)
  1. GEODON [Suspect]
     Indication: BIPOLAR DISORDER
     Dosage: 80 MG, 1X/DAY
     Route: 048
     Dates: start: 20120306
  2. SYNTHROID [Concomitant]
     Indication: BASEDOW'S DISEASE
     Dosage: 200 UG, 1X/DAY
  3. SUBOXONE [Concomitant]
     Dosage: 8 MG, 1X/DAY
  4. EFFEXOR [Suspect]
     Dosage: UNK
  5. BYSTOLIC [Concomitant]
     Indication: HYPERTENSION
     Dosage: UNK
  6. XANAX [Concomitant]
     Indication: ANXIETY
     Dosage: 1 MG, AS NEEDED

REACTIONS (6)
  - SOMNOLENCE [None]
  - FEELING ABNORMAL [None]
  - BIPOLAR DISORDER [None]
  - HYPERSOMNIA [None]
  - MALAISE [None]
  - FATIGUE [None]
